FAERS Safety Report 5793704-X (Version None)
Quarter: 2008Q2

REPORT INFORMATION
  Report Type: 
  Country: None (occurrence: None)
  Receive Date: 20080627
  Receipt Date: 20080620
  Transmission Date: 20081010
  Serious: Yes (Other)
  Sender: FDA-Public Use
  Company Number: US-AMGEN-QUU288776

PATIENT
  Sex: Female

DRUGS (2)
  1. ENBREL [Suspect]
     Indication: RHEUMATOID ARTHRITIS
     Route: 058
     Dates: start: 20071230
  2. METHOTREXATE [Concomitant]
     Route: 048
     Dates: start: 20070901

REACTIONS (3)
  - ARTHRALGIA [None]
  - BILIARY CIRRHOSIS PRIMARY [None]
  - LABORATORY TEST ABNORMAL [None]
